FAERS Safety Report 15630083 (Version 1)
Quarter: 2018Q4

REPORT INFORMATION
  Report Type: Spontaneous
  Country: US (occurrence: US)
  Receive Date: 20181118
  Receipt Date: 20181118
  Transmission Date: 20190205
  Serious: No
  Sender: FDA-Public Use
  Company Number: US-009507513-1811USA004692

PATIENT
  Sex: Female

DRUGS (1)
  1. PREGNYL [Suspect]
     Active Substance: CHORIOGONADOTROPIN ALFA
     Indication: INFERTILITY FEMALE
     Dosage: STRENGTH: 10,000 U/V, DOSE: 10,000 UNITS, ONCE
     Route: 030
     Dates: start: 20180822

REACTIONS (1)
  - Maternal exposure before pregnancy [Unknown]
